FAERS Safety Report 11983889 (Version 4)
Quarter: 2016Q1

REPORT INFORMATION
  Report Type: Report from Study
  Country: US (occurrence: US)
  Receive Date: 20160201
  Receipt Date: 20160307
  Transmission Date: 20160526
  Serious: Yes (Other)
  Sender: FDA-Public Use
  Company Number: PHEH2016US001919

PATIENT
  Age: 61 Year
  Sex: Female

DRUGS (3)
  1. GLEEVEC [Interacting]
     Active Substance: IMATINIB MESYLATE
     Indication: GASTROINTESTINAL STROMAL TUMOUR
     Dosage: 400 MG, UNK
     Route: 065
     Dates: start: 201308
  2. GLEEVEC [Interacting]
     Active Substance: IMATINIB MESYLATE
     Dosage: 400 MG, BID
     Route: 065
  3. ATORVASTATIN [Suspect]
     Active Substance: ATORVASTATIN
     Indication: BLOOD CHOLESTEROL INCREASED
     Route: 065

REACTIONS (10)
  - Affective disorder [Unknown]
  - Herpes zoster [Recovered/Resolved]
  - Immune system disorder [Unknown]
  - Lacrimation decreased [Unknown]
  - Metastases to liver [Recovered/Resolved]
  - Drug interaction [Unknown]
  - Eye haemorrhage [Not Recovered/Not Resolved]
  - Dry eye [Unknown]
  - Anxiety [Unknown]
  - Eye haemorrhage [Recovered/Resolved]

NARRATIVE: CASE EVENT DATE: 201503
